FAERS Safety Report 9397875 (Version 1)
Quarter: 2013Q3

REPORT INFORMATION
  Report Type: Spontaneous
  Country: US (occurrence: US)
  Receive Date: 20130712
  Receipt Date: 20130712
  Transmission Date: 20140515
  Serious: Yes (Other)
  Sender: FDA-Public Use
  Company Number: PHEH2013US014402

PATIENT
  Sex: Female

DRUGS (5)
  1. EXFORGE HCT [Suspect]
     Dosage: 1 DF(320/25/10 MG), QD
     Route: 048
  2. D VITAMIINI [Suspect]
     Dosage: 1.25 MG, QW2
     Route: 048
  3. PLAQUENIL [Concomitant]
     Dosage: 200 MG, QD
     Route: 048
  4. PREDNISONE [Concomitant]
     Dosage: 10 MG, QD
     Route: 048
  5. MULTI-VIT [Concomitant]
     Dosage: UNK UKN, QD
     Route: 048

REACTIONS (1)
  - Systemic lupus erythematosus [Unknown]
